FAERS Safety Report 10179272 (Version 1)
Quarter: 2014Q2

REPORT INFORMATION
  Report Type: Spontaneous
  Country: US (occurrence: None)
  Receive Date: 20140515
  Receipt Date: 20140515
  Transmission Date: 20141212
  Serious: Yes (Hospitalization, Other)
  Sender: FDA-Public Use
  Company Number: 001730324A

PATIENT
  Age: 48 Year
  Sex: Female

DRUGS (7)
  1. PROACTIV + SKIN SMOOTHING EXFOLIATOR [Suspect]
     Indication: ACNE
     Dosage: TWICE DAILY DERMAL
     Dates: start: 20140228, end: 20140305
  2. PROACTIV + PORE TARGETING TREATMENT [Suspect]
     Indication: ACNE
     Dosage: TWICE DAILY DERMAL
     Dates: start: 20140228, end: 20140305
  3. PROACTIV + COMPLEXION PERFECTING HYDRATOR [Suspect]
     Indication: ACNE
     Dosage: TWICE DAILY DERMAL
     Dates: start: 20140228, end: 20140305
  4. PROACTIV + CLEANSING BODY BAR [Suspect]
     Indication: ACNE
     Dosage: TWICE DAILY DERMAL
     Dates: start: 20140228, end: 20140305
  5. PROACTIV + EMERGENCY BLEMISH RELIEF [Suspect]
     Indication: ACNE
     Dosage: TWICE DAILY DERMAL
     Dates: start: 20140228, end: 20140305
  6. PROACTIV + SKIN PURIFYING MASK [Suspect]
     Indication: ACNE
     Dosage: TWICE DAILY DERMAL
     Dates: start: 20140228, end: 20140305
  7. VITACLEAR DIETARY SUPPLEMENT [Concomitant]

REACTIONS (2)
  - Furuncle [None]
  - Wound [None]
